FAERS Safety Report 13365065 (Version 1)
Quarter: 2017Q1

REPORT INFORMATION
  Report Type: Spontaneous
  Country: US (occurrence: US)
  Receive Date: 20170323
  Receipt Date: 20170323
  Transmission Date: 20170429
  Serious: No
  Sender: FDA-Public Use
  Company Number: US-ROCHE-1460169

PATIENT
  Sex: Female

DRUGS (1)
  1. XOLAIR [Suspect]
     Active Substance: OMALIZUMAB
     Indication: DERMATITIS ATOPIC
     Dosage: 3 SHOTS EVERY 2 WEEKS
     Route: 065

REACTIONS (4)
  - Alopecia [Unknown]
  - Urticaria [Unknown]
  - Drug ineffective [Unknown]
  - Blister [Unknown]
